FAERS Safety Report 8588033-5 (Version None)
Quarter: 2012Q3

REPORT INFORMATION
  Report Type: 
  Country: None (occurrence: None)
  Receive Date: 20120813
  Receipt Date: 20120730
  Transmission Date: 20120928
  Serious: Yes (Death, Congenital Anomaly)
  Sender: FDA-Public Use
  Company Number: US-RANBAXY-2011US-50102

PATIENT
  Sex: Male
  Weight: 2.696 kg

DRUGS (6)
  1. KALETRA [Suspect]
     Indication: MATERNAL EXPOSURE DURING PREGNANCY
     Dosage: UNK
     Route: 064
     Dates: start: 20110421, end: 20110428
  2. NORVIR [Suspect]
     Dosage: 100 MG/DAY
     Route: 064
     Dates: start: 20110511
  3. PREZISTA [Suspect]
     Indication: MATERNAL EXPOSURE DURING PREGNANCY
     Dosage: 800 MG/DAY
     Route: 064
     Dates: start: 20110428
  4. ZIDOVUDINE [Suspect]
     Indication: MATERNAL EXPOSURE DURING PREGNANCY
     Dosage: 2.0 MG/DAY
     Route: 064
     Dates: start: 20110915, end: 20110915
  5. NORVIR [Suspect]
     Indication: MATERNAL EXPOSURE DURING PREGNANCY
     Dosage: 200 MG/DAY
     Route: 064
     Dates: start: 20110428, end: 20110510
  6. COMBIVIR [Suspect]
     Indication: MATERNAL EXPOSURE DURING PREGNANCY
     Dosage: UNK
     Route: 064
     Dates: start: 20110421, end: 20110915

REACTIONS (3)
  - PREMATURE BABY [None]
  - FOETAL GROWTH RESTRICTION [None]
  - FOETAL EXPOSURE DURING PREGNANCY [None]
